FAERS Safety Report 18833272 (Version 1)
Quarter: 2021Q1

REPORT INFORMATION
  Report Type: Spontaneous
  Country: CA (occurrence: CA)
  Receive Date: 20210201
  Receipt Date: 20210201
  Transmission Date: 20210419
  Serious: Yes (Other)
  Sender: FDA-Public Use
  Company Number: CA-JNJFOC-20210148490

PATIENT
  Age: 20 Year
  Sex: Female
  Weight: 64 kg

DRUGS (3)
  1. REMICADE [Suspect]
     Active Substance: INFLIXIMAB
     Indication: CROHN^S DISEASE
     Route: 042
  2. IMURAN [Concomitant]
     Active Substance: AZATHIOPRINE
     Route: 048
  3. IMURAN [Concomitant]
     Active Substance: AZATHIOPRINE

REACTIONS (10)
  - Condition aggravated [Not Recovered/Not Resolved]
  - Product use issue [Not Recovered/Not Resolved]
  - Heart rate irregular [Not Recovered/Not Resolved]
  - Intentional product use issue [Not Recovered/Not Resolved]
  - Arthralgia [Not Recovered/Not Resolved]
  - Attention deficit hyperactivity disorder [Not Recovered/Not Resolved]
  - Inappropriate schedule of product administration [Not Recovered/Not Resolved]
  - Off label use [Not Recovered/Not Resolved]
  - Blood pressure increased [Not Recovered/Not Resolved]
  - Blood pressure fluctuation [Not Recovered/Not Resolved]
